FAERS Safety Report 4379214-5 (Version None)
Quarter: 2004Q2

REPORT INFORMATION
  Report Type: 
  Country: None (occurrence: None)
  Receive Date: 20040617
  Receipt Date: 20040609
  Transmission Date: 20050107
  Serious: Yes (Death, Hospitalization)
  Sender: FDA-Public Use
  Company Number: 200415965GDDC

PATIENT
  Age: 63 Year
  Sex: 0

DRUGS (1)
  1. ARAVA [Suspect]
     Indication: ARTHRITIS
     Route: 048

REACTIONS (1)
  - HAEMORRHAGIC STROKE [None]
